FAERS Safety Report 10552705 (Version 1)
Quarter: 2014Q4

REPORT INFORMATION
  Report Type: Spontaneous
  Country: RS (occurrence: RS)
  Receive Date: 20141029
  Receipt Date: 20141029
  Transmission Date: 20150529
  Serious: Yes (Other)
  Sender: FDA-Public Use
  Company Number: PHHY2014RS138496

PATIENT
  Age: 54 Year
  Sex: Female

DRUGS (16)
  1. KEPPRA [Interacting]
     Active Substance: LEVETIRACETAM
     Dosage: 750 MG, (500MG IN THE MORNING AND 250 MG IN THE EVENING)
     Route: 048
  2. AMLOGAL [Concomitant]
     Indication: PRODUCT USED FOR UNKNOWN INDICATION
     Dosage: UNK
     Route: 065
  3. FENOBARBITAL [Concomitant]
     Active Substance: PHENOBARBITAL
     Indication: PRODUCT USED FOR UNKNOWN INDICATION
     Route: 065
  4. MONOPRIL PLUS [Concomitant]
     Indication: ESSENTIAL HYPERTENSION
     Route: 048
  5. TEGRETOL [Suspect]
     Active Substance: CARBAMAZEPINE
     Indication: EPILEPSY
     Dosage: UNK
     Route: 065
     Dates: start: 1993
  6. KEPPRA [Interacting]
     Active Substance: LEVETIRACETAM
     Dosage: 1 DF, QD
     Route: 048
  7. BENSEDIN [Concomitant]
     Indication: PRODUCT USED FOR UNKNOWN INDICATION
     Dosage: 1 DF, TID (LONG TERM)
     Route: 048
  8. CAVINTON [Concomitant]
     Active Substance: VINPOCETINE
     Indication: PRODUCT USED FOR UNKNOWN INDICATION
     Dosage: 1 DF, BID
     Route: 048
     Dates: start: 201407
  9. LAMICTAL [Concomitant]
     Active Substance: LAMOTRIGINE
     Indication: PRODUCT USED FOR UNKNOWN INDICATION
     Dosage: 1 DF, BID
     Route: 048
  10. KEPPRA [Interacting]
     Active Substance: LEVETIRACETAM
     Indication: EPILEPSY
     Dosage: 1500 MG (1000 MG IN THE MORNING AND 500 MG IN THE EVENING)
     Route: 048
  11. BINEVOL [Concomitant]
     Indication: PRODUCT USED FOR UNKNOWN INDICATION
     Dosage: UNK
     Route: 065
  12. LASIX [Concomitant]
     Active Substance: FUROSEMIDE
     Indication: PRODUCT USED FOR UNKNOWN INDICATION
     Dosage: UNK, PRN
     Route: 065
  13. EFTIL [Concomitant]
     Indication: PRODUCT USED FOR UNKNOWN INDICATION
     Route: 065
  14. TEGRETOL [Interacting]
     Active Substance: CARBAMAZEPINE
     Dosage: 1 DF, TID
     Route: 048
     Dates: start: 201407
  15. NIFELAT                            /00915801/ [Concomitant]
     Indication: PRODUCT USED FOR UNKNOWN INDICATION
     Dosage: UNK, PRN
     Route: 065
  16. URSOCAM [Concomitant]
     Indication: HEPATIC FIBROSIS
     Dosage: 1 DF, BID
     Route: 065

REACTIONS (2)
  - Self injurious behaviour [Not Recovered/Not Resolved]
  - Drug interaction [Unknown]

NARRATIVE: CASE EVENT DATE: 2012
